FAERS Safety Report 5612610-4 (Version None)
Quarter: 2008Q1

REPORT INFORMATION
  Report Type: 
  Country: None (occurrence: None)
  Receive Date: 20080201
  Receipt Date: 20080201
  Transmission Date: 20080703
  Serious: Yes (Hospitalization)
  Sender: FDA-Public Use
  Company Number: None

PATIENT
  Age: 65 Year
  Sex: Male
  Weight: 81.19 kg

DRUGS (3)
  1. WARFARIN SODIUM [Suspect]
     Indication: ATRIAL FIBRILLATION
     Dosage: 5MG PM PO
     Route: 048
  2. WARFARIN SODIUM [Suspect]
     Indication: CORONARY ARTERY DISEASE
     Dosage: 5MG PM PO
     Route: 048
  3. CLOPIDOGREL BISULFATE [Suspect]
     Dosage: 75MG EVERY DAY PO
     Route: 048
     Dates: start: 20070619

REACTIONS (4)
  - ANAEMIA [None]
  - CORONARY ARTERY DISEASE [None]
  - GASTRITIS EROSIVE [None]
  - HAEMORRHOIDS [None]
